FAERS Safety Report 5033793-3 (Version None)
Quarter: 2006Q2

REPORT INFORMATION
  Report Type: 
  Country: None (occurrence: None)
  Receive Date: 20060518
  Receipt Date: 20050615
  Transmission Date: 20061013
  Serious: Yes (Other)
  Sender: FDA-Public Use
  Company Number: 2005089113

PATIENT
  Age: 19 Year
  Sex: Female
  Weight: 137.8935 kg

DRUGS (2)
  1. DEPO-PROVERA [Suspect]
     Indication: CONTRACEPTION
     Dosage: SEE IMAGE
     Dates: start: 20050102, end: 20050102
  2. DEPO-PROVERA [Suspect]
     Indication: CONTRACEPTION
     Dosage: SEE IMAGE
     Dates: start: 20050320, end: 20050320

REACTIONS (2)
  - UNINTENDED PREGNANCY [None]
  - WEIGHT INCREASED [None]
